FAERS Safety Report 6718667-1 (Version None)
Quarter: 2010Q2

REPORT INFORMATION
  Report Type: 
  Country: None (occurrence: None)
  Receive Date: 20100505
  Receipt Date: 20100408
  Transmission Date: 20101027
  Serious: Yes (Death, Hospitalization)
  Sender: FDA-Public Use
  Company Number: 2010040050

PATIENT
  Age: 65 Year
  Sex: Female

DRUGS (8)
  1. TORSEMIDE [Suspect]
     Indication: OEDEMA DUE TO CARDIAC DISEASE
     Dosage: ORAL
     Route: 048
     Dates: start: 20080318, end: 20080325
  2. SUNITINIB MALATE [Suspect]
     Indication: BREAST CANCER
     Dosage: 37.5 MG (37.5 MG, 1 IN 1 D), ORAL
     Route: 048
     Dates: start: 20080219, end: 20080310
  3. AMLODIPINE [Concomitant]
  4. CANDESARTAN (CANDESARTAN CILEXETIL) [Concomitant]
  5. CARVEDILOL [Concomitant]
  6. REBAMIPIDE (REBAMIPIDE) [Concomitant]
  7. LOXOPROFEN (LOXOPROFEN) [Concomitant]
  8. DICLOFENAC SODIUM [Concomitant]

REACTIONS (17)
  - ADRENAL DISORDER [None]
  - ARTHRALGIA [None]
  - BLOOD PRESSURE DECREASED [None]
  - BRADYCARDIA [None]
  - BREAST CANCER [None]
  - CARDIAC FAILURE [None]
  - CHEST PAIN [None]
  - DEEP VEIN THROMBOSIS [None]
  - FACE OEDEMA [None]
  - HAEMOGLOBIN DECREASED [None]
  - HEPATIC LESION [None]
  - HYPERTENSION [None]
  - LYMPHANGIOSIS CARCINOMATOSA [None]
  - MALIGNANT NEOPLASM PROGRESSION [None]
  - METASTASES TO LIVER [None]
  - PULMONARY EMBOLISM [None]
  - RESPIRATORY FAILURE [None]
